FAERS Safety Report 6830232-4 (Version None)
Quarter: 2010Q3

REPORT INFORMATION
  Report Type: 
  Country: None (occurrence: None)
  Receive Date: 20100712
  Receipt Date: 20100630
  Transmission Date: 20110219
  Serious: Yes (Hospitalization)
  Sender: FDA-Public Use
  Company Number: US-BIOGENIDEC-2009BI029306

PATIENT
  Age: 40 Year
  Sex: Female
  Weight: 61 kg

DRUGS (2)
  1. TYSABRI [Suspect]
     Indication: MULTIPLE SCLEROSIS
     Route: 042
     Dates: start: 20070501, end: 20080114
  2. TYSABRI [Suspect]
     Route: 042
     Dates: start: 20080619, end: 20091020

REACTIONS (5)
  - DEPRESSION [None]
  - INFLUENZA [None]
  - INTERVERTEBRAL DISC PROTRUSION [None]
  - MULTIPLE SCLEROSIS RELAPSE [None]
  - PRURITUS [None]
